FAERS Safety Report 6493409-6 (Version None)
Quarter: 2009Q4

REPORT INFORMATION
  Report Type: 
  Country: None (occurrence: None)
  Receive Date: 20091214
  Receipt Date: 20091208
  Transmission Date: 20100525
  Serious: Yes (Disabling)
  Sender: FDA-Public Use
  Company Number: US-MERCK-0912USA01221

PATIENT
  Age: 49 Year
  Sex: Male

DRUGS (3)
  1. JANUMET [Suspect]
     Indication: TYPE 2 DIABETES MELLITUS
     Route: 048
     Dates: start: 20090701, end: 20090801
  2. JANUMET [Suspect]
     Route: 048
     Dates: start: 20090929, end: 20091001
  3. TYLENOL (CAPLET) [Concomitant]
     Route: 065

REACTIONS (5)
  - BLOOD GLUCOSE ABNORMAL [None]
  - DIZZINESS [None]
  - HEADACHE [None]
  - NAUSEA [None]
  - URTICARIA [None]
